FAERS Safety Report 19299158 (Version 1)
Quarter: 2021Q2

REPORT INFORMATION
  Report Type: Spontaneous
  Country: CN (occurrence: CN)
  Receive Date: 20210524
  Receipt Date: 20210524
  Transmission Date: 20210717
  Serious: Yes (Other)
  Sender: FDA-Public Use
  Company Number: CN-PFIZER INC-2021517666

PATIENT
  Age: 72 Year
  Sex: Male
  Weight: 49 kg

DRUGS (5)
  1. VORICONAZOLE. [Suspect]
     Active Substance: VORICONAZOLE
     Dosage: 0.200 G, 2X/DAY
     Route: 048
     Dates: start: 20210422, end: 20210424
  2. VORICONAZOLE. [Suspect]
     Active Substance: VORICONAZOLE
     Indication: FUNGAL INFECTION
     Dosage: 0.400 G, 2X/DAY
     Route: 041
     Dates: start: 20210418, end: 20210419
  3. VORICONAZOLE. [Suspect]
     Active Substance: VORICONAZOLE
     Dosage: 0.2 G, 2X/DAY
     Route: 041
     Dates: start: 20210419, end: 20210422
  4. KE LI DAI [Concomitant]
     Indication: VEHICLE SOLUTION USE
     Dosage: 100.000 ML, 2X/DAY
     Route: 041
     Dates: start: 20210418, end: 20210422
  5. VORICONAZOLE. [Suspect]
     Active Substance: VORICONAZOLE
     Indication: FUNGAL INFECTION
     Dosage: 0.200 G, 2X/DAY
     Route: 048
     Dates: start: 20210223, end: 20210224

REACTIONS (6)
  - Chest discomfort [Recovering/Resolving]
  - Hyperhidrosis [Recovering/Resolving]
  - Agitation [Recovering/Resolving]
  - Palpitations [Recovering/Resolving]
  - Asthenia [Recovering/Resolving]
  - Tremor [Recovering/Resolving]

NARRATIVE: CASE EVENT DATE: 20210420
